FAERS Safety Report 21536634 (Version 1)
Quarter: 2022Q4

REPORT INFORMATION
  Report Type: Spontaneous
  Country: CA (occurrence: CA)
  Receive Date: 20221101
  Receipt Date: 20221101
  Transmission Date: 20230112
  Serious: Yes (Disabling)
  Sender: FDA-Public Use
  Company Number: CA-TEVA-2022-CA-2820775

PATIENT
  Age: 25 Year
  Sex: Female
  Weight: 45 kg

DRUGS (1)
  1. CLARITHROMYCIN [Suspect]
     Active Substance: CLARITHROMYCIN
     Indication: Sinusitis
     Dosage: 1000 MILLIGRAM DAILY; THERAPY DURATION 4.0 DAYS
     Route: 048

REACTIONS (2)
  - Akathisia [Recovering/Resolving]
  - Psychomotor hyperactivity [Recovering/Resolving]
